FAERS Safety Report 4826515-X (Version None)
Quarter: 2005Q4

REPORT INFORMATION
  Report Type: 
  Country: None (occurrence: None)
  Receive Date: 20051111
  Receipt Date: 20031121
  Transmission Date: 20060501
  Serious: Yes (Hospitalization, Disabling)
  Sender: FDA-Public Use
  Company Number: US-MERCK-0311USA02535

PATIENT
  Age: 48 Year
  Sex: Female
  Weight: 56 kg

DRUGS (6)
  1. VIOXX [Suspect]
     Indication: ARTHRALGIA
     Route: 048
     Dates: start: 20011108, end: 20020113
  2. EXCEDRIN (MIGRAINE) [Concomitant]
     Route: 065
  3. MIDRIN [Concomitant]
     Route: 065
  4. GRAPE SEEDS [Concomitant]
     Route: 065
     Dates: start: 20001201
  5. LINSEED OIL [Concomitant]
     Route: 065
     Dates: start: 20001201
  6. ASCORBIC ACID [Concomitant]
     Route: 065
     Dates: start: 20001201

REACTIONS (34)
  - ANXIETY [None]
  - BALANCE DISORDER [None]
  - BARTHOLIN'S ABSCESS [None]
  - BRAIN OEDEMA [None]
  - CAROTID ARTERY STENOSIS [None]
  - CEREBRAL ARTERY STENOSIS [None]
  - CEREBRAL HAEMATOMA [None]
  - CEREBRAL HAEMORRHAGE [None]
  - COLPORRHAPHY [None]
  - CYCLIC VOMITING SYNDROME [None]
  - CYSTOCELE [None]
  - DRUG ADMINISTRATION ERROR [None]
  - DYSTONIA [None]
  - DYSURIA [None]
  - ENTEROCELE [None]
  - HEADACHE [None]
  - HYDRONEPHROSIS [None]
  - HYPERSENSITIVITY [None]
  - HYSTERECTOMY [None]
  - IATROGENIC INJURY [None]
  - ILEUS [None]
  - INJURY [None]
  - INSOMNIA [None]
  - MIGRAINE [None]
  - MIGRAINE WITHOUT AURA [None]
  - NAUSEA [None]
  - OOPHORECTOMY [None]
  - PELVIC PROLAPSE [None]
  - POST PROCEDURAL HEADACHE [None]
  - RECTOCELE [None]
  - STRESS [None]
  - STRESS INCONTINENCE [None]
  - URETERIC INJURY [None]
  - VOMITING [None]
